FAERS Safety Report 12247312 (Version 1)
Quarter: 2016Q2

REPORT INFORMATION
  Report Type: Spontaneous
  Country: IT (occurrence: IT)
  Receive Date: 20160407
  Receipt Date: 20160407
  Transmission Date: 20160815
  Serious: Yes (Hospitalization)
  Sender: FDA-Public Use
  Company Number: PHHY2016IT045142

PATIENT
  Age: 52 Year
  Sex: Male
  Weight: 65 kg

DRUGS (2)
  1. INDAPAMIDE SANDOZ [Suspect]
     Active Substance: INDAPAMIDE
     Indication: HYPERTENSION
     Dosage: 2.5 MG, QD
     Route: 048
     Dates: start: 20131021, end: 20160301
  2. VALSARTAN EG [Suspect]
     Active Substance: VALSARTAN
     Indication: HYPERTENSION
     Dosage: 320 MG, QD
     Route: 048
     Dates: start: 20111008, end: 20160301

REACTIONS (3)
  - Hypokalaemia [Recovered/Resolved with Sequelae]
  - Syncope [Recovered/Resolved with Sequelae]
  - Penis injury [Recovered/Resolved with Sequelae]

NARRATIVE: CASE EVENT DATE: 20160301
